FAERS Safety Report 6850586-2 (Version None)
Quarter: 2010Q3

REPORT INFORMATION
  Report Type: 
  Country: None (occurrence: None)
  Receive Date: 20100716
  Receipt Date: 20071130
  Transmission Date: 20110219
  Serious: No
  Sender: FDA-Public Use
  Company Number: US-PFIZER INC-2007086771

PATIENT
  Sex: Male
  Weight: 96.8 kg

DRUGS (11)
  1. CHANTIX [Suspect]
     Indication: SMOKING CESSATION THERAPY
     Dates: start: 20070901
  2. LEXAPRO [Concomitant]
     Indication: DEPRESSION
  3. ACETYLSALICYLIC ACID [Concomitant]
  4. ALTACE [Concomitant]
  5. ATENOLOL [Concomitant]
     Indication: HYPERTENSION
  6. TRICOR [Concomitant]
  7. SIMVASTATIN [Concomitant]
     Indication: BLOOD CHOLESTEROL INCREASED
  8. DIAZEPAM [Concomitant]
     Indication: ANXIETY
  9. ZYPREXA [Concomitant]
     Indication: SCHIZOPHRENIA
  10. NEXIUM [Concomitant]
     Indication: GASTRIC ULCER
  11. CENTRUM [Concomitant]

REACTIONS (3)
  - DEPRESSION [None]
  - SLUGGISHNESS [None]
  - SOMNOLENCE [None]
